FAERS Safety Report 22620123 (Version 1)
Quarter: 2023Q2

REPORT INFORMATION
  Report Type: Spontaneous
  Country: US (occurrence: US)
  Receive Date: 20230620
  Receipt Date: 20230620
  Transmission Date: 20230722
  Serious: Yes (Congenital Anomaly, Other)
  Sender: FDA-Public Use
  Company Number: US-SA-SAC20230531001170

PATIENT

DRUGS (10)
  1. DUPIXENT [Suspect]
     Active Substance: DUPILUMAB
     Indication: Maternal exposure during pregnancy
     Dosage: UNK,SOLUTION FOR INJECTION
     Route: 065
  2. DUPIXENT [Suspect]
     Active Substance: DUPILUMAB
     Dosage: UNK
     Route: 051
     Dates: start: 2018
  3. PREDNISONE [Suspect]
     Active Substance: PREDNISONE
     Indication: Maternal exposure during pregnancy
     Dosage: UNK
     Route: 051
  4. PREDNISONE [Suspect]
     Active Substance: PREDNISONE
     Dosage: {20 MG/DAY
     Route: 051
  5. MIRTAZAPINE [Suspect]
     Active Substance: MIRTAZAPINE
     Indication: Maternal exposure during pregnancy
     Dosage: UNK
     Route: 051
  6. FLUTICASONE FUROATE [Suspect]
     Active Substance: FLUTICASONE FUROATE
     Indication: Maternal exposure during pregnancy
     Dosage: UNK, INHALER, HIGH DOSE
     Route: 051
  7. OMALIZUMAB [Suspect]
     Active Substance: OMALIZUMAB
     Indication: Maternal exposure during pregnancy
     Dosage: UNK
     Route: 051
     Dates: start: 2009
  8. VILANTEROL [Suspect]
     Active Substance: VILANTEROL
     Indication: Maternal exposure during pregnancy
     Dosage: UNK, INHALER
     Route: 051
  9. TIOTROPIUM [Suspect]
     Active Substance: TIOTROPIUM
     Indication: Maternal exposure during pregnancy
     Dosage: UNK, INHALER
     Route: 051
  10. OXYGEN [Suspect]
     Active Substance: OXYGEN
     Indication: Maternal exposure during pregnancy
     Dosage: 3 L
     Route: 051

REACTIONS (6)
  - Pituitary stalk interruption syndrome [Unknown]
  - Hypopituitarism [Unknown]
  - Secondary hypogonadism [Unknown]
  - Cleft palate [Unknown]
  - Congenital pharyngeal anomaly [Unknown]
  - Foetal exposure during pregnancy [Unknown]
